FAERS Safety Report 22264882 (Version 1)
Quarter: 2023Q2

REPORT INFORMATION
  Report Type: Spontaneous
  Country: IT (occurrence: IT)
  Receive Date: 20230428
  Receipt Date: 20230428
  Transmission Date: 20230721
  Serious: Yes (Hospitalization)
  Sender: FDA-Public Use
  Company Number: IT-MYLANLABS-2023M1043841

PATIENT
  Age: 34 Year
  Sex: Female

DRUGS (6)
  1. ACETAMINOPHEN [Suspect]
     Active Substance: ACETAMINOPHEN
     Indication: Analgesic therapy
     Dosage: UNK
     Route: 065
  2. ASPIRIN [Suspect]
     Active Substance: ASPIRIN
     Indication: Prophylaxis
     Dosage: LOW DOSE
     Route: 065
  3. ASPIRIN [Suspect]
     Active Substance: ASPIRIN
     Indication: Pre-eclampsia
  4. NIMODIPINE [Suspect]
     Active Substance: NIMODIPINE
     Indication: Vasospasm
     Dosage: 60 MILLIGRAM, QD (1.5 ML ORAL SOLUTION SIX TIMES PER DAY)
     Route: 048
  5. NIMODIPINE [Suspect]
     Active Substance: NIMODIPINE
     Indication: Vasospasm
     Dosage: 30 MILLIGRAM, QD
     Route: 065
  6. THYROXINE [Suspect]
     Active Substance: LEVOTHYROXINE
     Indication: Thyroid hormone replacement therapy
     Dosage: 25 MICROGRAM, QD
     Route: 065

REACTIONS (2)
  - Drug ineffective [Unknown]
  - Maternal exposure during pregnancy [Recovered/Resolved]
